FAERS Safety Report 4898348-X (Version None)
Quarter: 2006Q1

REPORT INFORMATION
  Report Type: 
  Country: None (occurrence: None)
  Receive Date: 20060127
  Receipt Date: 20060118
  Transmission Date: 20060701
  Serious: Yes (Death)
  Sender: FDA-Public Use
  Company Number: 163-20785-05110409

PATIENT
  Age: 77 Year
  Sex: Female

DRUGS (4)
  1. THALOMID [Suspect]
     Indication: RENAL CELL CARCINOMA STAGE UNSPECIFIED
     Dosage: 200 MG, Q HS, ORAL
     Route: 048
     Dates: start: 20040715, end: 20050606
  2. ASPIRIN [Concomitant]
  3. COREG [Concomitant]
  4. PROTONIX [Concomitant]

REACTIONS (4)
  - CARDIAC ARREST [None]
  - MALIGNANT NEOPLASM PROGRESSION [None]
  - METASTATIC RENAL CELL CARCINOMA [None]
  - RESPIRATORY FAILURE [None]
